FAERS Safety Report 9680585 (Version 2)
Quarter: 2014Q1

REPORT INFORMATION
  Report Type: Spontaneous
  Country: US (occurrence: US)
  Receive Date: 20131111
  Receipt Date: 20140115
  Transmission Date: 20141002
  Serious: No
  Sender: FDA-Public Use
  Company Number: US-PFIZER INC-2013320559

PATIENT
  Age: 67 Year
  Sex: Male
  Weight: 82 kg

DRUGS (13)
  1. XELJANZ [Suspect]
     Indication: RHEUMATOID ARTHRITIS
     Dosage: 5 MG, 1X/DAY
     Route: 048
     Dates: start: 20131007
  2. XELJANZ [Suspect]
     Dosage: 5 MG, 2X/DAY
     Route: 048
     Dates: end: 20131028
  3. PULMICORT [Concomitant]
     Indication: ASTHMA
     Dosage: UNK, 1X/DAY
  4. NASACORT [Concomitant]
     Indication: SINUSITIS
     Dosage: UNK, 1X/DAY
  5. NASACORT [Concomitant]
     Indication: RHINITIS
  6. PRILOSEC [Concomitant]
     Indication: GASTROOESOPHAGEAL REFLUX DISEASE
     Dosage: 40 MG, 1X/DAY
  7. PRILOSEC [Concomitant]
     Dosage: 20 MG, 1X/DAY
  8. VERAPAMIL [Concomitant]
     Indication: HYPERTENSION
     Dosage: 100 MG, 1X/DAY
  9. LEFLUNOMIDE [Concomitant]
     Dosage: 20 MG, UNK
  10. PREDNISONE [Concomitant]
     Dosage: 3 MG, UNK
  11. CALCIUM [Concomitant]
     Dosage: UNK
  12. IBUPROFEN [Concomitant]
     Dosage: UNK, AS NEEDED
  13. FISH OIL [Concomitant]
     Dosage: UNK

REACTIONS (6)
  - Hypersensitivity [Unknown]
  - Malaise [Unknown]
  - Asthenia [Unknown]
  - Diarrhoea [Unknown]
  - Fatigue [Recovered/Resolved]
  - Influenza like illness [Recovered/Resolved]
